FAERS Safety Report 5524244-0 (Version None)
Quarter: 2007Q4

REPORT INFORMATION
  Report Type: 
  Country: None (occurrence: None)
  Receive Date: 20071121
  Receipt Date: 20071113
  Transmission Date: 20080405
  Serious: Yes (Death, Hospitalization)
  Sender: FDA-Public Use
  Company Number: JP-PFIZER INC-2007091841

PATIENT
  Sex: Female
  Weight: 57 kg

DRUGS (7)
  1. CYTOTEC [Suspect]
     Indication: PROPHYLAXIS AGAINST GASTROINTESTINAL ULCER
     Route: 048
     Dates: start: 20071023, end: 20071027
  2. LOXONIN [Suspect]
     Indication: INFLAMMATION
     Route: 048
     Dates: start: 20061226, end: 20071027
  3. CEFZON [Suspect]
     Indication: WOUND INFECTION
     Route: 048
     Dates: start: 20061226, end: 20071027
  4. LOCHOL [Concomitant]
     Route: 048
     Dates: start: 20070529, end: 20071028
  5. BLOPRESS [Concomitant]
     Route: 048
     Dates: start: 20070329, end: 20071028
  6. CALBLOCK [Concomitant]
     Route: 048
     Dates: start: 20070329, end: 20071028
  7. ISODINE [Concomitant]

REACTIONS (3)
  - ACUTE HEPATIC FAILURE [None]
  - BLOOD PRESSURE DECREASED [None]
  - PLATELET COUNT DECREASED [None]
